FAERS Safety Report 5324524-8 (Version None)
Quarter: 2007Q2

REPORT INFORMATION
  Report Type: 
  Country: None (occurrence: None)
  Receive Date: 20070508
  Receipt Date: 20070430
  Transmission Date: 20071010
  Serious: Yes (Life-Threatening)
  Sender: FDA-Public Use
  Company Number: 2007US001018

PATIENT
  Age: 60 Year
  Sex: Female

DRUGS (2)
  1. AMBISOME [Suspect]
     Indication: FUNGAL INFECTION
     Dosage: 2 MG/KG, UID/QD, IV DRIP
     Route: 041
  2. ITRACONAZOLE [Concomitant]

REACTIONS (1)
  - INTERSTITIAL LUNG DISEASE [None]
